FAERS Safety Report 11233081 (Version 1)
Quarter: 2015Q3

REPORT INFORMATION
  Report Type: Spontaneous
  Country: IT (occurrence: IT)
  Receive Date: 20150701
  Receipt Date: 20150701
  Transmission Date: 20151125
  Serious: Yes (Other)
  Sender: FDA-Public Use
  Company Number: IT-GLAXOSMITHKLINE-IT2014GSK018510

PATIENT
  Age: 14 Year
  Sex: Male

DRUGS (2)
  1. GAVISCON [Suspect]
     Active Substance: ALUMINUM HYDROXIDE\MAGNESIUM CARBONATE
     Indication: PRODUCT USED FOR UNKNOWN INDICATION
     Dosage: UNK
     Dates: start: 20140812, end: 20140812
  2. RANITIDINE [Suspect]
     Active Substance: RANITIDINE\RANITIDINE HYDROCHLORIDE
     Indication: PRODUCT USED FOR UNKNOWN INDICATION
     Dosage: 150 MG, U
     Dates: start: 20140812, end: 20140812

REACTIONS (3)
  - Dyspnoea [Recovering/Resolving]
  - Rhinitis [Recovering/Resolving]
  - Throat tightness [Recovering/Resolving]

NARRATIVE: CASE EVENT DATE: 20140812
